FAERS Safety Report 8419044-8 (Version None)
Quarter: 2012Q2

REPORT INFORMATION
  Report Type: 
  Country: None (occurrence: None)
  Receive Date: 20120607
  Receipt Date: 20120604
  Transmission Date: 20120825
  Serious: Yes (Hospitalization)
  Sender: FDA-Public Use
  Company Number: PHHY2012MX034871

PATIENT
  Sex: Female

DRUGS (4)
  1. CERVILANE [Concomitant]
     Dosage: 1 DF, DAILY
  2. CINNARIZINE [Concomitant]
     Indication: CARDIOVASCULAR DISORDER
  3. DIOVAN HCT [Suspect]
     Indication: HYPERTENSION
     Dosage: 1 DF (80/12.5MG), DAILY
     Dates: start: 20120327
  4. CINNARIZINE [Concomitant]
     Indication: DIZZINESS
     Dosage: 1 DF, DAILY

REACTIONS (5)
  - INFLUENZA [None]
  - LACRIMATION INCREASED [None]
  - SALMONELLOSIS [None]
  - DRUG INEFFECTIVE [None]
  - NASAL CONGESTION [None]
